FAERS Safety Report 4621338-9 (Version None)
Quarter: 2005Q1

REPORT INFORMATION
  Report Type: 
  Country: None (occurrence: None)
  Receive Date: 20050324
  Receipt Date: 20050324
  Transmission Date: 20050727
  Serious: Yes (Other)
  Sender: FDA-Public Use
  Company Number: None

PATIENT
  Age: 48 Year
  Sex: Female
  Weight: 94.8018 kg

DRUGS (3)
  1. ENBREL [Suspect]
     Indication: RHEUMATOID ARTHRITIS
     Dosage: 25 SUBCUT
     Route: 058
     Dates: start: 20011001, end: 20050801
  2. PREDNISONE [Concomitant]
  3. CELEBREX [Concomitant]

REACTIONS (1)
  - PEMPHIGUS [None]
